FAERS Safety Report 4499749-4 (Version None)
Quarter: 2004Q4

REPORT INFORMATION
  Report Type: 
  Country: None (occurrence: None)
  Receive Date: 20041112
  Receipt Date: 20041027
  Transmission Date: 20050328
  Serious: Yes (Life-Threatening, Other)
  Sender: FDA-Public Use
  Company Number: PHRM2004TN03237

PATIENT
  Age: 68 Year
  Sex: Female
  Weight: 75 kg

DRUGS (5)
  1. COTAREG [Suspect]
     Indication: HYPERTENSION
     Dosage: 1 TABLET/DAY
     Route: 048
     Dates: start: 20030201, end: 20041010
  2. TAREG [Suspect]
     Indication: HYPERTENSION
     Dosage: 80 MG, QD
     Route: 048
     Dates: start: 20030202, end: 20041010
  3. FLECAINE [Suspect]
     Indication: ATRIAL FIBRILLATION
     Dosage: 1/2 TABLET/BID
     Route: 048
     Dates: start: 20020201
  4. LEVOTHYROX [Concomitant]
     Indication: HYPOTHYROIDISM
     Dosage: 50 ?G/DAY
     Route: 048
     Dates: start: 20020202
  5. DEROXAT [Concomitant]
     Indication: DEPRESSION
     Dosage: 1 TABLET/DAY
     Route: 048
     Dates: start: 20040606

REACTIONS (3)
  - ANGIONEUROTIC OEDEMA [None]
  - CREPITATIONS [None]
  - FACE OEDEMA [None]
